FAERS Safety Report 10425447 (Version 1)
Quarter: 2014Q3

REPORT INFORMATION
  Report Type: Spontaneous
  Country: US (occurrence: None)
  Receive Date: 20140722
  Receipt Date: 20140722
  Transmission Date: 20150326
  Serious: No
  Sender: FDA-Public Use
  Company Number: AEGR000393

PATIENT
  Age: 42 Year
  Sex: Female
  Weight: 97.5 kg

DRUGS (1)
  1. JUXTAPID [Suspect]
     Active Substance: LOMITAPIDE MESYLATE
     Indication: TYPE IIA HYPERLIPIDAEMIA
     Route: 048
     Dates: start: 20140318

REACTIONS (3)
  - Vomiting [None]
  - Dyspepsia [None]
  - Diarrhoea [None]

NARRATIVE: CASE EVENT DATE: 20140330
